FAERS Safety Report 18021643 (Version 1)
Quarter: 2020Q3

REPORT INFORMATION
  Report Type: Spontaneous
  Country: US (occurrence: US)
  Receive Date: 20200714
  Receipt Date: 20200714
  Transmission Date: 20201103
  Serious: No
  Sender: FDA-Public Use
  Company Number: US-JNJFOC-20200714474

PATIENT
  Sex: Male

DRUGS (1)
  1. NIZORAL [Suspect]
     Active Substance: KETOCONAZOLE
     Indication: DANDRUFF
     Dosage: BOTTLE /  0.02 COUPLE TIME A WEEK
     Route: 061

REACTIONS (2)
  - Product complaint [Unknown]
  - Expired product administered [Unknown]
